FAERS Safety Report 23310119 (Version 1)
Quarter: 2023Q4

REPORT INFORMATION
  Report Type: Spontaneous
  Country: US (occurrence: US)
  Receive Date: 20231218
  Receipt Date: 20231218
  Transmission Date: 20240109
  Serious: No
  Sender: FDA-Public Use
  Company Number: US-MYLANLABS-2023M1130045

PATIENT
  Age: 79 Year
  Sex: Male

DRUGS (1)
  1. REVEFENACIN [Suspect]
     Active Substance: REVEFENACIN
     Indication: Respiratory failure
     Dosage: UNK
     Route: 065

REACTIONS (2)
  - Agitation [Unknown]
  - Off label use [Unknown]
